FAERS Safety Report 15644061 (Version 2)
Quarter: 2018Q4

REPORT INFORMATION
  Report Type: Spontaneous
  Country: US (occurrence: US)
  Receive Date: 20181121
  Receipt Date: 20181207
  Transmission Date: 20190205
  Serious: Yes (Hospitalization)
  Sender: FDA-Public Use
  Company Number: US-HORIZON-PRO-0231-2018

PATIENT
  Age: 5 Year
  Sex: Male

DRUGS (1)
  1. PROCYSBI [Suspect]
     Active Substance: CYSTEAMINE BITARTRATE
     Indication: CYSTINOSIS
     Dosage: 600 MG BID, CHANGED TO 225 MG BID
     Route: 048
     Dates: start: 201808

REACTIONS (1)
  - Amino acid level increased [Recovered/Resolved]
